FAERS Safety Report 25536465 (Version 1)
Quarter: 2025Q3

REPORT INFORMATION
  Report Type: Spontaneous
  Country: CA (occurrence: CA)
  Receive Date: 20250709
  Receipt Date: 20250709
  Transmission Date: 20251021
  Serious: Yes (Hospitalization, Other)
  Sender: PURDUE
  Company Number: CA-NAPPMUNDI-GBR-2025-0127023

PATIENT
  Age: 75 Year
  Sex: Female

DRUGS (4)
  1. HYDROMORPHONE [Interacting]
     Active Substance: HYDROMORPHONE
     Indication: Product used for unknown indication
     Dosage: 9 MILLIGRAM, BID
     Route: 048
  2. HYDROMORPHONE HYDROCHLORIDE [Interacting]
     Active Substance: HYDROMORPHONE HYDROCHLORIDE
     Indication: Product used for unknown indication
     Dosage: 2 MILLIGRAM, Q2H, PRN (AS NECESSARY) (NOW TAKING UP TO 12 MG PER DAY)
     Route: 048
  3. ACETAMINOPHEN [Suspect]
     Active Substance: ACETAMINOPHEN
     Indication: Product used for unknown indication
     Route: 065
  4. PREGABALIN [Interacting]
     Active Substance: PREGABALIN
     Indication: Product used for unknown indication
     Route: 065

REACTIONS (4)
  - Toxicity to various agents [Recovered/Resolved]
  - Fall [Unknown]
  - Labelled drug-drug interaction issue [Unknown]
  - Inappropriate schedule of product administration [Unknown]
